FAERS Safety Report 12964557 (Version 1)
Quarter: 2016Q4

REPORT INFORMATION
  Report Type: Spontaneous
  Country: FR (occurrence: FR)
  Receive Date: 20161122
  Receipt Date: 20161122
  Transmission Date: 20170207
  Serious: Yes (Death, Life-Threatening, Other)
  Sender: FDA-Public Use
  Company Number: FR-PFIZER INC-2016534578

PATIENT
  Age: 67 Year
  Sex: Male

DRUGS (7)
  1. CYTOTEC [Concomitant]
     Active Substance: MISOPROSTOL
     Indication: MUCOSAL INFLAMMATION
  2. SUTENT [Suspect]
     Active Substance: SUNITINIB MALATE
     Indication: RENAL CANCER METASTATIC
     Dosage: 50 MG, 14 DAYS OVER 21
     Route: 048
     Dates: start: 20160729, end: 20160825
  3. PHOSPHALUGEL /00488501/ [Concomitant]
  4. CYTOTEC [Concomitant]
     Active Substance: MISOPROSTOL
     Indication: APHTHOUS ULCER
  5. SODIUM BICARBONATE. [Concomitant]
     Active Substance: SODIUM BICARBONATE
     Indication: APHTHOUS ULCER
  6. SUTENT [Suspect]
     Active Substance: SUNITINIB MALATE
     Dosage: 50 MG, 14 DAYS OVER 21
     Route: 048
     Dates: start: 20160909, end: 20160918
  7. SODIUM BICARBONATE. [Concomitant]
     Active Substance: SODIUM BICARBONATE
     Indication: MUCOSAL INFLAMMATION

REACTIONS (10)
  - Cardiogenic shock [Fatal]
  - Mucosal inflammation [Recovering/Resolving]
  - Anaemia [Recovering/Resolving]
  - Pneumonia aspiration [Unknown]
  - Pyrexia [Unknown]
  - Status epilepticus [Fatal]
  - Altered state of consciousness [Unknown]
  - Aspartate aminotransferase increased [Unknown]
  - Coma [Unknown]
  - Acute respiratory distress syndrome [Unknown]

NARRATIVE: CASE EVENT DATE: 20160918
